FAERS Safety Report 8484058-9 (Version None)
Quarter: 2012Q3

REPORT INFORMATION
  Report Type: 
  Country: None (occurrence: None)
  Receive Date: 20120703
  Receipt Date: 20120625
  Transmission Date: 20120928
  Serious: Yes (Hospitalization)
  Sender: FDA-Public Use
  Company Number: US-BAYER-201015989NA

PATIENT
  Age: 50 Year
  Sex: Female
  Weight: 65 kg

DRUGS (13)
  1. HYDROCHLOROTHIAZDE TAB [Concomitant]
  2. YASMIN [Suspect]
     Indication: CONTRACEPTION
  3. YAZ [Suspect]
     Indication: CONTRACEPTION
  4. AMBIEN [Concomitant]
     Dosage: 12.5 MG, UNK
     Route: 048
     Dates: start: 20060728
  5. YASMIN [Suspect]
     Indication: PREMENSTRUAL SYNDROME
     Dosage: UNK
     Route: 048
     Dates: start: 20050101, end: 20060101
  6. ANTIHYPERTENSIVES [Concomitant]
  7. CYCLOBENZAPRINE [Concomitant]
     Dosage: 10 MG, UNK
     Route: 048
     Dates: start: 20061007
  8. MOTRIN [Concomitant]
     Dates: start: 20060101, end: 20080101
  9. CLINDAMYCIN [Concomitant]
     Dosage: 150 MG, UNK
     Route: 048
     Dates: start: 20060813
  10. YAZ [Suspect]
     Indication: PREMENSTRUAL SYNDROME
  11. NAPROXEN [Concomitant]
     Dates: start: 20060101, end: 20080615
  12. TOPROL-XL [Concomitant]
  13. FLUID PILL [Concomitant]

REACTIONS (5)
  - MENTAL DISORDER [None]
  - PULMONARY EMBOLISM [None]
  - PAIN IN EXTREMITY [None]
  - OEDEMA PERIPHERAL [None]
  - DEEP VEIN THROMBOSIS [None]
